FAERS Safety Report 9805437 (Version 3)
Quarter: 2014Q1

REPORT INFORMATION
  Report Type: Spontaneous
  Country: JP (occurrence: JP)
  Receive Date: 20140109
  Receipt Date: 20140205
  Transmission Date: 20141002
  Serious: Yes (Other)
  Sender: FDA-Public Use
  Company Number: JP-ROCHE-1327260

PATIENT
  Age: 96 Year
  Sex: Female
  Weight: 38 kg

DRUGS (7)
  1. RIVOTRIL [Suspect]
     Indication: PRODUCT USED FOR UNKNOWN INDICATION
     Dosage: DOSAGE IS UNCERTAIN.
     Route: 048
  2. EDIROL [Suspect]
     Indication: PRODUCT USED FOR UNKNOWN INDICATION
     Route: 048
     Dates: start: 20120618, end: 20130627
  3. ONEALFA [Concomitant]
     Route: 048
     Dates: start: 20070402, end: 20120705
  4. DIOVAN [Concomitant]
     Route: 048
     Dates: start: 20060710
  5. CONIEL [Concomitant]
     Route: 048
     Dates: start: 20060711
  6. EVISTA [Concomitant]
     Route: 048
     Dates: start: 20080703
  7. FEBURIC [Concomitant]
     Route: 048
     Dates: start: 20130724

REACTIONS (5)
  - Renal failure [Not Recovered/Not Resolved]
  - Delusion [Recovered/Resolved]
  - Hyperventilation [Recovered/Resolved]
  - Hypercalcaemia [Recovered/Resolved]
  - Oedema [Recovering/Resolving]
